FAERS Safety Report 26022175 (Version 1)
Quarter: 2025Q4

REPORT INFORMATION
  Report Type: Spontaneous
  Country: US (occurrence: US)
  Receive Date: 20251110
  Receipt Date: 20251110
  Transmission Date: 20260118
  Serious: Yes (Hospitalization)
  Sender: ABBVIE
  Company Number: US-ABBVIE-6538880

PATIENT
  Age: 80 Year
  Sex: Male
  Weight: 66 kg

DRUGS (4)
  1. VENCLEXTA [Suspect]
     Active Substance: VENETOCLAX
     Indication: Polycythaemia vera
     Route: 048
  2. INQOVI [Suspect]
     Active Substance: CEDAZURIDINE\DECITABINE
     Indication: Polycythaemia vera
     Dosage: CEDAZURIDINE 100 MG AND DECITABINE 35 MG; DAYS 1-3; CYCLE UNKNOWN
     Route: 048
     Dates: start: 20250227
  3. INQOVI [Suspect]
     Active Substance: CEDAZURIDINE\DECITABINE
     Indication: Polycythaemia vera
     Dosage: CEDAZURIDINE 100 MG AND DECITABINE 35 MG; DAYS 1-5; CYCLE UNKNOWN
     Route: 048
     Dates: start: 20250811
  4. INQOVI [Suspect]
     Active Substance: CEDAZURIDINE\DECITABINE
     Indication: Polycythaemia vera
     Dosage: CEDAZURIDINE 100 MG AND DECITABINE 35 MG; DAYS 1-5; CYCLE UNKNOWN
     Route: 048
     Dates: start: 20250811

REACTIONS (4)
  - Haematocrit decreased [Unknown]
  - Haemoglobin decreased [Unknown]
  - Pyrexia [Unknown]
  - White blood cell count decreased [Unknown]
